FAERS Safety Report 16291522 (Version 1)
Quarter: 2019Q2

REPORT INFORMATION
  Report Type: Spontaneous
  Country: US (occurrence: US)
  Receive Date: 20190509
  Receipt Date: 20190509
  Transmission Date: 20190711
  Serious: No
  Sender: FDA-Public Use
  Company Number: US-ASTRAZENECA-2019SE30811

PATIENT
  Age: 40 Year
  Sex: Female

DRUGS (1)
  1. FASENRA [Suspect]
     Active Substance: BENRALIZUMAB
     Indication: ASTHMA
     Dosage: 30 MG EVERY 4 WEEKS FOR THE FIRST 3 DOSES THEN EVERY 8 WEEKS AFTER
     Route: 058
     Dates: start: 201810

REACTIONS (1)
  - Rash [Unknown]

NARRATIVE: CASE EVENT DATE: 201810
